FAERS Safety Report 9812201 (Version 1)
Quarter: 2014Q1

REPORT INFORMATION
  Report Type: Report from Study
  Country: US (occurrence: US)
  Receive Date: 20140112
  Receipt Date: 20140112
  Transmission Date: 20141002
  Serious: Yes (Death, Hospitalization)
  Sender: FDA-Public Use
  Company Number: US-ROCHE-1330114

PATIENT
  Sex: Male

DRUGS (17)
  1. AVASTIN [Suspect]
     Indication: COLON CANCER
     Dosage: 21/JAN/2013 (WITH NORMAL SALINE)
     Route: 042
  2. AVASTIN [Suspect]
     Dosage: 11/FEB/2013
     Route: 042
  3. XELODA [Suspect]
     Indication: COLON CANCER
     Route: 048
     Dates: start: 20130121
  4. OXALIPLATIN [Suspect]
     Indication: COLON CANCER
     Dosage: 13 MG/M2
     Route: 042
     Dates: start: 20130121
  5. IRINOTECAN [Concomitant]
     Route: 065
     Dates: start: 20130305
  6. ERBITUX [Concomitant]
     Route: 065
     Dates: start: 20130303
  7. LORAZEPAM [Concomitant]
     Route: 065
  8. PHENERGAN [Concomitant]
     Indication: NAUSEA
     Route: 065
  9. OXYCODONE [Concomitant]
     Indication: PAIN
     Dosage: 3 TAB EVERY 4 TO 6 HOURS
     Route: 065
  10. MIRALAX [Concomitant]
     Route: 048
  11. COLACE [Concomitant]
     Route: 048
  12. TYLENOL [Concomitant]
     Route: 065
  13. ONDANSETRON HCL [Concomitant]
     Dosage: 21-JAN-2013
     Route: 042
  14. DIPHENHYDRAMINE HCL [Concomitant]
     Dosage: 21-JAN-2013
     Route: 042
  15. DEXAMETHASONE SODIUM PHOSPHATE [Concomitant]
     Dosage: 21-JAN-2013
     Route: 042
  16. PALONOSETRON HYDROCHLORIDE [Concomitant]
     Dosage: 11-FEB-2013
     Route: 042
  17. SODIUM CHLORIDE [Concomitant]
     Route: 065

REACTIONS (5)
  - Colon cancer metastatic [Fatal]
  - Intestinal ischaemia [Unknown]
  - Pneumonia [Unknown]
  - Lethargy [Unknown]
  - Abdominal pain [Unknown]
